FAERS Safety Report 24618041 (Version 16)
Quarter: 2025Q4

REPORT INFORMATION
  Report Type: Report from Study
  Country: US (occurrence: US)
  Receive Date: 20241114
  Receipt Date: 20251114
  Transmission Date: 20260117
  Serious: Yes (Other)
  Sender: MIRUM PHARMACEUTICALS
  Company Number: US-MIRUM PHARMACEUTICALS, INC.-US-MIR-24-00980

PATIENT

DRUGS (9)
  1. MARALIXIBAT CHLORIDE [Suspect]
     Active Substance: MARALIXIBAT CHLORIDE
     Indication: Pruritus
     Dosage: UNK (RESTARTED DOSE)
     Route: 048
     Dates: start: 2024, end: 20241223
  2. MARALIXIBAT CHLORIDE [Suspect]
     Active Substance: MARALIXIBAT CHLORIDE
     Indication: Cholangitis sclerosing
     Dosage: 1.5 MILLILITER, QD  (200 UG/KG/DAY)
     Route: 048
     Dates: start: 20231201, end: 20231202
  3. MARALIXIBAT CHLORIDE [Suspect]
     Active Substance: MARALIXIBAT CHLORIDE
     Dosage: 1.25 MILLILITER, QD, THEN GRADUALLY REDUCED TO 0.75ML EVERY 3 DAYS
     Route: 048
     Dates: start: 20231203
  4. MARALIXIBAT CHLORIDE [Suspect]
     Active Substance: MARALIXIBAT CHLORIDE
     Dosage: 0.75 MILLILITER, EVERY 3 DAYS
     Route: 048
     Dates: end: 20240901
  5. MARALIXIBAT CHLORIDE [Suspect]
     Active Substance: MARALIXIBAT CHLORIDE
     Dosage: 0.75 MILLILITER, EVERY 3 DAYS
     Route: 048
     Dates: start: 2024, end: 20241115
  6. OMEPRAZOLE [Concomitant]
     Active Substance: OMEPRAZOLE
     Indication: Product used for unknown indication
     Dosage: 40 MILLIGRAM, QD
     Route: 065
  7. BUTORPHANOL [Concomitant]
     Active Substance: BUTORPHANOL
     Indication: Product used for unknown indication
     Dosage: UNK UNK, QD
     Route: 065
  8. HYDROXYZINE [Concomitant]
     Active Substance: HYDROXYZINE HYDROCHLORIDE
     Indication: Product used for unknown indication
     Dosage: 25 MILLIGRAM, PRN
     Route: 065
  9. ONDANSETRON [Concomitant]
     Active Substance: ONDANSETRON
     Indication: Product used for unknown indication
     Dosage: 4 MILLIGRAM, PRN
     Route: 065

REACTIONS (4)
  - Diarrhoea [Recovered/Resolved]
  - Dehydration [Recovered/Resolved]
  - Transplant evaluation [Unknown]
  - Transaminases increased [Recovered/Resolved]

NARRATIVE: CASE EVENT DATE: 20231101
